FAERS Safety Report 25415051 (Version 1)
Quarter: 2025Q2

REPORT INFORMATION
  Report Type: Spontaneous
  Country: FR (occurrence: FR)
  Receive Date: 20250609
  Receipt Date: 20250609
  Transmission Date: 20250717
  Serious: Yes (Other)
  Sender: SK LIFE SCIENCE
  Company Number: None

PATIENT

DRUGS (4)
  1. XCOPRI [Suspect]
     Active Substance: CENOBAMATE
     Indication: Epilepsy
     Dosage: (1 DOSAGE FORM, IN 1 DAY)
     Route: 048
     Dates: start: 20250206
  2. LEVOTHYROXINE SODIUM [Concomitant]
     Active Substance: LEVOTHYROXINE SODIUM
     Indication: Product used for unknown indication
     Dosage: (1 DOSAGE FORM, IN 1 DAY)
     Route: 048
  3. CYANOCOBALAMIN [Concomitant]
     Active Substance: CYANOCOBALAMIN
     Indication: Product used for unknown indication
     Dosage: (1000 MICROGRAM(S), IN 1 DAY)
     Route: 048
  4. TOPIRAMATE [Concomitant]
     Active Substance: TOPIRAMATE
     Indication: Product used for unknown indication
     Dosage: (300 MILLIGRAM(S), IN 1 DAY)
     Route: 048
     Dates: start: 20210723

REACTIONS (2)
  - Muscular weakness [Recovered/Resolved]
  - Gait inability [Recovered/Resolved]

NARRATIVE: CASE EVENT DATE: 20250401
